FAERS Safety Report 9017234 (Version 1)
Quarter: 2013Q1

REPORT INFORMATION
  Report Type: Spontaneous
  Country: US (occurrence: US)
  Receive Date: 20130117
  Receipt Date: 20130117
  Transmission Date: 20140127
  Serious: Yes (Other)
  Sender: FDA-Public Use
  Company Number: US-ASTRAZENECA-2013SE02224

PATIENT
  Age: 49 Year
  Sex: Male
  Weight: 77.1 kg

DRUGS (6)
  1. NEXIUM [Suspect]
     Indication: GASTROOESOPHAGEAL REFLUX DISEASE
     Route: 048
     Dates: start: 2002
  2. NEXIUM [Suspect]
     Indication: HIATUS HERNIA
     Route: 048
     Dates: start: 2002
  3. NEXIUM [Suspect]
     Indication: GASTROOESOPHAGEAL REFLUX DISEASE
     Route: 048
  4. NEXIUM [Suspect]
     Indication: HIATUS HERNIA
     Route: 048
  5. HYDROCODONE [Concomitant]
     Indication: PAIN
  6. VARIOUS PAIN MEDICATIONS [Concomitant]

REACTIONS (6)
  - Accident [Unknown]
  - Ligament rupture [Unknown]
  - Lower limb fracture [Unknown]
  - Lower limb fracture [Unknown]
  - Patella fracture [Unknown]
  - Osteoporosis [Unknown]
